FAERS Safety Report 9825051 (Version 1)
Quarter: 2013Q4

REPORT INFORMATION
  Report Type: Spontaneous
  Country: US (occurrence: None)
  Receive Date: 20131028
  Receipt Date: 20131028
  Transmission Date: 20140711
  Serious: Yes (Other)
  Sender: FDA-Public Use
  Company Number: 2013US001866

PATIENT
  Age: 62 Year
  Sex: Male

DRUGS (1)
  1. ICLUSIG (PONATINIB) TABLET, 15MG [Suspect]
     Dosage: 30 MG, QD, ORAL
     Route: 048
     Dates: start: 20130315

REACTIONS (1)
  - Rash [None]
